FAERS Safety Report 10170644 (Version 2)
Quarter: 2014Q2

REPORT INFORMATION
  Report Type: Report from Study
  Country: CA (occurrence: CA)
  Receive Date: 20140514
  Receipt Date: 20140514
  Transmission Date: 20141212
  Serious: Yes (Hospitalization, Other)
  Sender: FDA-Public Use
  Company Number: CA-ROCHE-1279841

PATIENT
  Age: 63 Year
  Sex: Female
  Weight: 84 kg

DRUGS (10)
  1. ACTEMRA [Suspect]
     Indication: RHEUMATOID ARTHRITIS
     Dosage: DATE OF MOST RECENT DOSE PRIOR TO ADVERSE EVENT: 19/SEP/2013
     Route: 042
     Dates: start: 20130730, end: 20140121
  2. PREDNISONE [Suspect]
     Indication: PRODUCT USED FOR UNKNOWN INDICATION
     Route: 065
  3. METFORMIN [Concomitant]
  4. ARAVA [Concomitant]
     Route: 065
  5. MORPHINE [Concomitant]
     Route: 065
  6. MORPHINE [Concomitant]
     Route: 065
  7. SYNTHROID [Concomitant]
  8. FUROSEMIDE [Concomitant]
  9. RABEPRAZOLE [Concomitant]
  10. STATEX (CANADA) [Concomitant]

REACTIONS (19)
  - Hypersensitivity [Unknown]
  - Tooth disorder [Not Recovered/Not Resolved]
  - Haemorrhoids [Unknown]
  - Pharyngitis [Unknown]
  - Blood pressure increased [Not Recovered/Not Resolved]
  - Rheumatoid nodule [Unknown]
  - Rash [Unknown]
  - Stomatitis [Recovered/Resolved]
  - Dysgeusia [Unknown]
  - Dry skin [Unknown]
  - Pain [Unknown]
  - Nausea [Not Recovered/Not Resolved]
  - Insomnia [Not Recovered/Not Resolved]
  - Gingival bleeding [Recovered/Resolved]
  - Mouth ulceration [Recovered/Resolved]
  - Blood pressure fluctuation [Unknown]
  - Pharyngeal inflammation [Unknown]
  - Headache [Unknown]
  - Drug hypersensitivity [Unknown]
